FAERS Safety Report 8158879-6 (Version None)
Quarter: 2012Q1

REPORT INFORMATION
  Report Type: 
  Country: None (occurrence: None)
  Receive Date: 20120223
  Receipt Date: 20120214
  Transmission Date: 20120608
  Serious: Yes (Other)
  Sender: FDA-Public Use
  Company Number: JP-PFIZER INC-2012046853

PATIENT
  Age: 78 Year
  Sex: Male

DRUGS (4)
  1. KETOPROFEN [Concomitant]
     Dosage: UNK
     Dates: start: 20120213, end: 20120214
  2. MYONAL [Concomitant]
     Dosage: UNK
     Route: 048
     Dates: start: 20120214, end: 20120214
  3. CELECOXIB [Suspect]
     Indication: BACK PAIN
     Dosage: 200 MG DAILY
     Route: 048
     Dates: start: 20120214, end: 20120214
  4. REBAMIPIDE [Concomitant]
     Dosage: UNK
     Dates: start: 20120214, end: 20120214

REACTIONS (1)
  - GENERALISED ERYTHEMA [None]
